FAERS Safety Report 5278502-8 (Version None)
Quarter: 2007Q1

REPORT INFORMATION
  Report Type: 
  Country: None (occurrence: None)
  Receive Date: 20070322
  Receipt Date: 20070313
  Transmission Date: 20070707
  Serious: Yes (Hospitalization)
  Sender: FDA-Public Use
  Company Number: 238236

PATIENT
  Age: 56 Year
  Sex: Female

DRUGS (5)
  1. AVASTIN [Suspect]
     Indication: BREAST CANCER
     Dosage: 15 MG/M2, Q2W, INTRAVENOUS
     Route: 042
  2. ARIMIDEX [Concomitant]
  3. COLACE (DOCUSATE SODIUM) [Concomitant]
  4. MOTRIN IB (IBUPROFEN) [Concomitant]
  5. LEVOXYL [Concomitant]

REACTIONS (5)
  - BRAIN NATRIURETIC PEPTIDE INCREASED [None]
  - DYSPNOEA EXERTIONAL [None]
  - EMPHYSEMA [None]
  - LUNG NEOPLASM [None]
  - PLEURAL EFFUSION [None]
